FAERS Safety Report 9921609 (Version 2)
Quarter: 2014Q1

REPORT INFORMATION
  Report Type: Spontaneous
  Country: US (occurrence: US)
  Receive Date: 20140225
  Receipt Date: 20140303
  Transmission Date: 20141002
  Serious: No
  Sender: FDA-Public Use
  Company Number: US-PFIZER INC-2014053120

PATIENT
  Sex: Female

DRUGS (3)
  1. ENBREL [Suspect]
     Dosage: UNK
  2. XELJANZ [Suspect]
     Indication: ARTHRALGIA
     Dosage: UNK
  3. XELJANZ [Suspect]
     Indication: JOINT SWELLING

REACTIONS (1)
  - Drug ineffective [Unknown]
